FAERS Safety Report 8543729-6 (Version None)
Quarter: 2012Q3

REPORT INFORMATION
  Report Type: 
  Country: None (occurrence: None)
  Receive Date: 20120727
  Receipt Date: 20120719
  Transmission Date: 20120928
  Serious: Yes (Hospitalization)
  Sender: FDA-Public Use
  Company Number: DE-JNJFOC-20120602617

PATIENT
  Sex: Male
  Weight: 150 kg

DRUGS (8)
  1. LORAZEPAM [Suspect]
     Route: 045
     Dates: start: 20120604, end: 20120604
  2. HALDOL [Suspect]
     Route: 045
     Dates: start: 20120604, end: 20120604
  3. LORAZEPAM [Suspect]
     Indication: PRODUCT USED FOR UNKNOWN INDICATION
     Route: 045
  4. KOFFEIN [Suspect]
     Indication: PRODUCT USED FOR UNKNOWN INDICATION
     Route: 045
     Dates: start: 20120604, end: 20120604
  5. HALDOL [Suspect]
     Indication: PRODUCT USED FOR UNKNOWN INDICATION
     Route: 045
  6. DIPIPERON [Suspect]
     Indication: PRODUCT USED FOR UNKNOWN INDICATION
     Route: 045
  7. DIPIPERON [Suspect]
     Route: 045
     Dates: start: 20120604, end: 20120604
  8. KOFFEIN [Suspect]
     Route: 045

REACTIONS (3)
  - SLUGGISHNESS [None]
  - DRUG ABUSE [None]
  - FATIGUE [None]
